FAERS Safety Report 5911175-7 (Version None)
Quarter: 2008Q4

REPORT INFORMATION
  Report Type: 
  Country: None (occurrence: None)
  Receive Date: 20081007
  Receipt Date: 20080430
  Transmission Date: 20090506
  Serious: No
  Sender: FDA-Public Use
  Company Number: US-BRISTOL-MYERS SQUIBB COMPANY-14171334

PATIENT
  Age: 62 Year
  Sex: Female

DRUGS (8)
  1. AVAPRO [Suspect]
     Indication: HYPERTENSION
     Route: 048
  2. NIASPAN [Suspect]
     Indication: BLOOD CHOLESTEROL INCREASED
     Route: 048
     Dates: start: 20070227
  3. AVALIDE [Concomitant]
     Indication: DIABETES MELLITUS
     Route: 048
  4. METOPROLOL TARTRATE [Concomitant]
     Indication: HYPERTENSION
     Route: 048
  5. LASIX [Concomitant]
     Indication: CARDIAC DISORDER
     Route: 048
  6. TRICOR [Concomitant]
     Indication: BLOOD CHOLESTEROL INCREASED
     Route: 048
  7. GLUCOVANCE [Concomitant]
     Indication: DIABETES MELLITUS
     Route: 048
  8. INSULIN [Concomitant]
     Indication: DIABETES MELLITUS
     Route: 048

REACTIONS (1)
  - DIZZINESS [None]
